FAERS Safety Report 16308866 (Version 1)
Quarter: 2019Q2

REPORT INFORMATION
  Report Type: Spontaneous
  Country: US (occurrence: US)
  Receive Date: 20190514
  Receipt Date: 20190514
  Transmission Date: 20190711
  Serious: Yes (Hospitalization, Other)
  Sender: FDA-Public Use
  Company Number: US-AUROBINDO-AUR-APL-2019-026356

PATIENT

DRUGS (18)
  1. AZATHIOPRINE. [Suspect]
     Active Substance: AZATHIOPRINE
     Indication: MOUTH ULCERATION
  2. RITUXIMAB. [Suspect]
     Active Substance: RITUXIMAB
     Indication: VISION BLURRED
     Dosage: UNK, TWO ADDITIONAL DOSES
     Route: 065
  3. RITUXIMAB. [Suspect]
     Active Substance: RITUXIMAB
     Indication: PHOTOPHOBIA
  4. TOCILIZUMAB. [Suspect]
     Active Substance: TOCILIZUMAB
     Indication: IRIDOCYCLITIS
     Dosage: UNK
     Route: 065
  5. PIROXICAM. [Concomitant]
     Active Substance: PIROXICAM
     Indication: SCLERITIS
     Dosage: UNK
     Route: 065
  6. PREDNISONE. [Suspect]
     Active Substance: PREDNISONE
     Indication: CHORIORETINITIS
     Dosage: 60 MILLIGRAM, DAILY
     Route: 048
  7. AZATHIOPRINE. [Suspect]
     Active Substance: AZATHIOPRINE
     Indication: IMMUNOSUPPRESSION
     Dosage: UNK
     Route: 065
  8. CYCLOPHOSPHAMIDE. [Suspect]
     Active Substance: CYCLOPHOSPHAMIDE
     Indication: IMMUNOSUPPRESSION
     Dosage: UNK
     Route: 065
  9. CYCLOSPORINE. [Suspect]
     Active Substance: CYCLOSPORINE
     Indication: IMMUNOSUPPRESSION
     Dosage: UNK
     Route: 065
  10. BROMFENAC [Concomitant]
     Active Substance: BROMFENAC SODIUM
     Indication: EYE PAIN
     Dosage: UNK
     Route: 065
  11. PREDNISOLONE. [Suspect]
     Active Substance: PREDNISOLONE
     Indication: CONJUNCTIVAL ULCER
     Dosage: UNK
     Route: 065
  12. METHYLPREDNISOLONE. [Suspect]
     Active Substance: METHYLPREDNISOLONE
     Indication: IMMUNOSUPPRESSION
     Dosage: UNK
     Route: 042
  13. RITUXIMAB. [Suspect]
     Active Substance: RITUXIMAB
     Indication: EYE PAIN
     Dosage: UNK
     Route: 065
  14. AZATHIOPRINE. [Suspect]
     Active Substance: AZATHIOPRINE
     Indication: SCLERITIS
  15. ADALIMUMAB [Suspect]
     Active Substance: ADALIMUMAB
     Indication: MOUTH ULCERATION
  16. ADALIMUMAB [Suspect]
     Active Substance: ADALIMUMAB
     Indication: SCLERITIS
     Dosage: UNK
     Route: 065
  17. PREDNISONE. [Suspect]
     Active Substance: PREDNISONE
     Indication: IMMUNOSUPPRESSION
     Dosage: UNK, HIGH DOSE
     Route: 065
  18. LOTEPREDNOL [Concomitant]
     Active Substance: LOTEPREDNOL
     Indication: IRIDOCYCLITIS
     Dosage: UNK
     Route: 065

REACTIONS (22)
  - Rash [Recovered/Resolved]
  - Retinal detachment [Unknown]
  - Skin exfoliation [Unknown]
  - Mouth ulceration [Unknown]
  - Headache [Unknown]
  - Skin atrophy [Unknown]
  - Blindness [Unknown]
  - Retinitis [Recovered/Resolved]
  - Lacrimation increased [Unknown]
  - Rhinalgia [Unknown]
  - Eye pain [Unknown]
  - Visual impairment [Unknown]
  - Iritis [Unknown]
  - Syphilis [Unknown]
  - Scleritis [Recovered/Resolved]
  - Pupillary reflex impaired [Unknown]
  - Nausea [Unknown]
  - Aphthous ulcer [Unknown]
  - Rash erythematous [Unknown]
  - Skin lesion [Unknown]
  - Photophobia [Unknown]
  - Lymphadenopathy [Unknown]
